FAERS Safety Report 17363940 (Version 1)
Quarter: 2020Q1

REPORT INFORMATION
  Report Type: Report from Study
  Country: US (occurrence: US)
  Receive Date: 20200203
  Receipt Date: 20200203
  Transmission Date: 20200409
  Serious: Yes (Hospitalization, Other)
  Sender: FDA-Public Use
  Company Number: US-BRISTOL-MYERS SQUIBB COMPANY-BMS-2020-007487

PATIENT
  Age: 58 Year
  Sex: Male
  Weight: 62.5 kg

DRUGS (1)
  1. NIVOLUMAB [Suspect]
     Active Substance: NIVOLUMAB
     Indication: OROPHARYNGEAL CANCER
     Dosage: UNK
     Route: 065
     Dates: start: 20190925, end: 20191120

REACTIONS (4)
  - Oral pain [Unknown]
  - Haemoptysis [Unknown]
  - Rhinorrhoea [Unknown]
  - Rhinalgia [Unknown]

NARRATIVE: CASE EVENT DATE: 20200127
